FAERS Safety Report 12718486 (Version 2)
Quarter: 2016Q3

REPORT INFORMATION
  Report Type: Spontaneous
  Country: US (occurrence: US)
  Receive Date: 20160906
  Receipt Date: 20160922
  Transmission Date: 20161109
  Serious: Yes (Death, Hospitalization, Other)
  Sender: FDA-Public Use
  Company Number: US-PFIZER INC-2016413337

PATIENT
  Age: 83 Year
  Sex: Male

DRUGS (20)
  1. ALLOPURINOL. [Concomitant]
     Active Substance: ALLOPURINOL
     Dosage: 300 MG, DAILY (BREAKFAST)
  2. STOOL SOFTENER [Concomitant]
     Active Substance: DOCUSATE CALCIUM
     Dosage: 250 MG, 2X/DAY (BREAKFAST, BEDTIME)
  3. LISINOPRIL. [Concomitant]
     Active Substance: LISINOPRIL
     Dosage: 2.5 MG, AS NEEDED (BEFORE BREAKFAST)
  4. LEVOTHYROXINE. [Concomitant]
     Active Substance: LEVOTHYROXINE
     Dosage: 0.075 MG, DAILY (BEFORE BREAKFAST)
  5. BUMETANIDE. [Concomitant]
     Active Substance: BUMETANIDE
     Dosage: 1 MG, 3X/DAY (BREAKFAST, DINNER, BEDTIME)
  6. TAMSULOSIN [Concomitant]
     Active Substance: TAMSULOSIN
     Dosage: 0.4 MG, DAILY (BREAKFAST)
  7. KLOR-CON [Concomitant]
     Active Substance: POTASSIUM CHLORIDE
     Dosage: 10 MEQ, 2X/DAY (BREAKFAST, DINNER)
  8. ASPIRIN. [Concomitant]
     Active Substance: ASPIRIN
     Dosage: 81 MG, UNK (BREAKFAST)
  9. PRIMACOR [Concomitant]
     Active Substance: MILRINONE LACTATE
     Dosage: 375MCG/KG/HR
     Route: 042
  10. IRON [Concomitant]
     Active Substance: IRON
     Dosage: 65 MG, DAILY (DINNER)
  11. TRAZODONE [Concomitant]
     Active Substance: TRAZODONE HYDROCHLORIDE
     Dosage: 100 MG, DAILY (BEDTIME)
  12. VICODIN [Concomitant]
     Active Substance: ACETAMINOPHEN\HYDROCODONE BITARTRATE
     Dosage: 5/300 DAILY AS NEEDED
  13. CALCITROL [Concomitant]
     Active Substance: CALCITRIOL
     Dosage: 0.25 MG, DAILY (BREAKFAST)
  14. METOPROLOL. [Concomitant]
     Active Substance: METOPROLOL
     Dosage: 25 MG EXT RELEASE,
  15. REVATIO [Suspect]
     Active Substance: SILDENAFIL CITRATE
     Indication: ANGIOPATHY
     Dosage: 20 MG, 3X/DAY (BEFORE BREAKFAST, LUNCH, DINNER)
     Dates: start: 201411
  16. PROTONIX [Concomitant]
     Active Substance: PANTOPRAZOLE SODIUM
     Dosage: 40 MG, 2X/DAY ( (BEFORE BREAKFAST, BEFORE DINNER)
  17. SPIRIVA [Concomitant]
     Active Substance: TIOTROPIUM BROMIDE MONOHYDRATE
     Dosage: UNK, ALTERNATE DAY (BEFORE BREAKFAST)
  18. AMIODARONE [Concomitant]
     Active Substance: AMIODARONE
     Dosage: 200 MG, DAILY (LUNCH)
  19. CARAFATE [Concomitant]
     Active Substance: SUCRALFATE
     Dosage: 10 ML, 3X/DAY (BEFORE BREAKFAST, LUNCH, BEFORE DINNER)
  20. ALPRAZOLAM. [Concomitant]
     Active Substance: ALPRAZOLAM
     Dosage: 0.5 MG, 1X/DAY (BEDTIME)

REACTIONS (5)
  - Product use issue [Unknown]
  - Fall [Unknown]
  - Malaise [Unknown]
  - Asthenia [Unknown]
  - Cardiac failure congestive [Fatal]

NARRATIVE: CASE EVENT DATE: 201411
